FAERS Safety Report 6316955-4 (Version None)
Quarter: 2009Q3

REPORT INFORMATION
  Report Type: 
  Country: None (occurrence: None)
  Receive Date: 20090820
  Receipt Date: 20090810
  Transmission Date: 20100115
  Serious: Yes (Hospitalization, Other)
  Sender: FDA-Public Use
  Company Number: PHHY2009BR33732

PATIENT
  Sex: Female

DRUGS (1)
  1. ACLASTA [Suspect]
     Indication: OSTEOPOROSIS
     Dosage: 5 MG, UNK
     Dates: start: 20081101

REACTIONS (15)
  - ABASIA [None]
  - ARTHRALGIA [None]
  - DRUG INEFFECTIVE [None]
  - FALL [None]
  - HUMERUS FRACTURE [None]
  - LIMB IMMOBILISATION [None]
  - LIMB OPERATION [None]
  - LOWER LIMB FRACTURE [None]
  - MUSCULOSKELETAL DISCOMFORT [None]
  - OEDEMA PERIPHERAL [None]
  - OSTEOPOROSIS [None]
  - PELVIC FRACTURE [None]
  - PHYSIOTHERAPY [None]
  - SPLINT APPLICATION [None]
  - TREMOR [None]
